FAERS Safety Report 6906436-9 (Version None)
Quarter: 2010Q3

REPORT INFORMATION
  Report Type: 
  Country: None (occurrence: None)
  Receive Date: 20100804
  Receipt Date: 20100726
  Transmission Date: 20110219
  Serious: Yes (Other)
  Sender: FDA-Public Use
  Company Number: B0667738A

PATIENT
  Age: 33 Year
  Sex: Female

DRUGS (8)
  1. SALMETEROL XINAFOATE [Suspect]
     Route: 055
  2. BUDESONIDE [Suspect]
     Route: 065
  3. SPINAL ANAESTHESIA [Suspect]
  4. PROCATEROL HCL [Suspect]
  5. HYDROCORTISONE [Suspect]
  6. AMINOPHYLLINE [Suspect]
  7. EPHEDRINE [Suspect]
  8. BETAMETHASONE [Suspect]

REACTIONS (8)
  - ANAPHYLACTOID REACTION [None]
  - BLOOD ZINC INCREASED [None]
  - DRUG EXPOSURE DURING PREGNANCY [None]
  - DYSPNOEA [None]
  - HYPERSENSITIVITY [None]
  - LIVE BIRTH [None]
  - OXYGEN SATURATION DECREASED [None]
  - WHEEZING [None]
